FAERS Safety Report 5855658-7 (Version None)
Quarter: 2008Q3

REPORT INFORMATION
  Report Type: 
  Country: None (occurrence: None)
  Receive Date: 20080823
  Receipt Date: 20080818
  Transmission Date: 20090109
  Serious: Yes (Hospitalization)
  Sender: FDA-Public Use
  Company Number: US-ELI_LILLY_AND_COMPANY-US200808000713

PATIENT
  Sex: Female
  Weight: 117.46 kg

DRUGS (27)
  1. BYETTA [Suspect]
     Indication: TYPE 2 DIABETES MELLITUS
     Dosage: 10 UG, 2/D
     Route: 058
     Dates: start: 20050101
  2. WELCHOL [Concomitant]
     Dosage: UNK, 3/D
  3. POLY-IRON /01214501/ [Concomitant]
     Dosage: 150 MG, 2/D
  4. NEXIUM [Concomitant]
     Dosage: 40 MG, 2/D
  5. METFORMIN [Concomitant]
     Dosage: 500 MG, 2/D
     Dates: start: 20080101
  6. XANAX [Concomitant]
     Dosage: 0.25 MG, 3/D
  7. AMARYL [Concomitant]
     Dosage: 2 MG, 2/D
  8. LEVOTHYROXINE SODIUM [Concomitant]
     Dosage: 200 UG, DAILY (1/D)
  9. ADVAIR DISKUS 100/50 [Concomitant]
     Dosage: UNK, 2/D
  10. ALBUTEROL [Concomitant]
     Dosage: UNK, EACH EVENING
  11. FOLIC ACID [Concomitant]
     Dosage: 1 MG, DAILY (1/D)
  12. AMILORIDE HYDROCHLORIDE [Concomitant]
     Dosage: 5 MG, DAILY (1/D)
  13. FLONASE [Concomitant]
     Dosage: UNK, 2/D
  14. POTASSIUM CHLORIDE [Concomitant]
     Dosage: UNK, 2/D
  15. AMBIEN [Concomitant]
     Dosage: UNK, EACH EVENING
  16. MECLIZINE [Concomitant]
     Dosage: 25 MG, AS NEEDED
  17. CELEBREX [Concomitant]
     Dosage: 200 MG, DAILY (1/D)
  18. ASACOL [Concomitant]
     Dosage: 400 MG, 3/D
  19. WELLBUTRIN [Concomitant]
     Dosage: 150 MG, DAILY (1/D)
  20. LASIX [Concomitant]
     Dosage: 80 MG, 2/D
  21. SINGULAIR [Concomitant]
     Dosage: 10 MG, EACH EVENING
  22. SPIRIVA [Concomitant]
     Dosage: UNK, EACH EVENING
  23. REQUIP [Concomitant]
     Dosage: 1 MG, EACH EVENING
  24. LYRICA [Concomitant]
     Dosage: 75 MG, 3/D
  25. PAXIL [Concomitant]
     Dosage: 20 MG, 2/D
  26. ULTRAM [Concomitant]
     Dosage: 200 MG, DAILY (1/D)
  27. OXYGEN [Concomitant]
     Dates: start: 20080703, end: 20080706

REACTIONS (6)
  - BLOOD GLUCOSE INCREASED [None]
  - CARDIAC FAILURE CONGESTIVE [None]
  - DYSPNOEA [None]
  - FLUID RETENTION [None]
  - HEPATOMEGALY [None]
  - SPLENOMEGALY [None]
